FAERS Safety Report 12909792 (Version 8)
Quarter: 2019Q2

REPORT INFORMATION
  Report Type: Report from Study
  Country: DE (occurrence: DE)
  Receive Date: 20161104
  Receipt Date: 20190429
  Transmission Date: 20190711
  Serious: Yes (Death, Hospitalization, Other)
  Sender: FDA-Public Use
  Company Number: PHHY2016DE149309

PATIENT
  Age: 55 Year
  Sex: Male
  Weight: 100 kg

DRUGS (3)
  1. TRAMETINIB [Suspect]
     Active Substance: TRAMETINIB
     Indication: METASTATIC MALIGNANT MELANOMA
     Dosage: 2 MG, QD
     Route: 048
     Dates: start: 20160412, end: 20160522
  2. TAFINLAR [Suspect]
     Active Substance: DABRAFENIB MESYLATE
     Indication: METASTATIC MALIGNANT MELANOMA
     Dosage: 150 MG, BID
     Route: 048
     Dates: start: 20160412, end: 20160522
  3. TAFINLAR [Suspect]
     Active Substance: DABRAFENIB MESYLATE
     Dosage: 150 MG, BID
     Route: 048
     Dates: start: 20160531, end: 20160831

REACTIONS (12)
  - Lung infiltration [Recovered/Resolved]
  - Pneumonitis [Recovered/Resolved]
  - Haemorrhage intracranial [Recovered/Resolved]
  - Dyspnoea exertional [Recovered/Resolved]
  - Pyrexia [Recovered/Resolved]
  - Pneumonia [Unknown]
  - Malignant neoplasm progression [Fatal]
  - Metastases to central nervous system [Unknown]
  - Hidradenitis [Recovered/Resolved]
  - Subcutaneous abscess [Recovered/Resolved]
  - Metastatic malignant melanoma [Fatal]
  - Perineal abscess [Recovered/Resolved]

NARRATIVE: CASE EVENT DATE: 20160522
